FAERS Safety Report 12146070 (Version 3)
Quarter: 2016Q2

REPORT INFORMATION
  Report Type: Spontaneous
  Country: JP (occurrence: JP)
  Receive Date: 20160304
  Receipt Date: 20160531
  Transmission Date: 20160815
  Serious: Yes (Disabling)
  Sender: FDA-Public Use
  Company Number: JP-ASTELLAS-2016JP003355

PATIENT
  Age: 81 Year
  Sex: Male
  Weight: 44 kg

DRUGS (13)
  1. DENOTAS [Concomitant]
     Active Substance: CALCIUM CARBONATE\CHOLECALCIFEROL\MAGNESIUM CARBONATE
     Indication: LUNG ADENOCARCINOMA
     Route: 048
     Dates: start: 20131001, end: 20160224
  2. DEXART [Concomitant]
     Active Substance: DEXAMETHASONE SODIUM PHOSPHATE
     Indication: LUNG ADENOCARCINOMA
     Dosage: UNK UNK, UNKNOWN FREQ.
     Route: 042
     Dates: end: 20160212
  3. PREDNISOLONE. [Concomitant]
     Active Substance: PREDNISOLONE
     Indication: PROSTATE CANCER
     Route: 048
     Dates: start: 20140926, end: 20160224
  4. PANVITAN                           /05664201/ [Concomitant]
     Active Substance: VITAMINS
     Indication: LUNG ADENOCARCINOMA
     Route: 048
     Dates: end: 20160224
  5. XTANDI [Suspect]
     Active Substance: ENZALUTAMIDE
     Indication: PROSTATE CANCER
     Route: 048
     Dates: start: 20160122, end: 20160224
  6. VOLTAREN [Concomitant]
     Active Substance: DICLOFENAC SODIUM
     Indication: PROSTATE CANCER
     Route: 054
     Dates: start: 20160212, end: 20160224
  7. PROTECADIN [Concomitant]
     Active Substance: LAFUTIDINE
     Indication: PROSTATE CANCER
     Route: 048
     Dates: start: 20140926, end: 20160224
  8. CALONAL [Concomitant]
     Active Substance: ACETAMINOPHEN
     Indication: PROSTATE CANCER
     Route: 048
     Dates: start: 20160219, end: 20160224
  9. GRANISETRON [Concomitant]
     Active Substance: GRANISETRON
     Indication: LUNG ADENOCARCINOMA
     Dosage: UNK UNK, UNKNOWN FREQ.
     Route: 042
     Dates: end: 20160212
  10. GONAX [Concomitant]
     Active Substance: DEGARELIX
     Indication: PROSTATE CANCER
     Route: 058
     Dates: start: 20131002, end: 20160219
  11. METHYCOBAL [Concomitant]
     Active Substance: METHYLCOBALAMIN
     Indication: LUNG ADENOCARCINOMA
     Dosage: UNK UNK, UNKNOWN FREQ.
     Route: 042
     Dates: end: 20160212
  12. RANMARK [Concomitant]
     Active Substance: DENOSUMAB
     Indication: LUNG ADENOCARCINOMA
     Route: 058
     Dates: start: 20131001, end: 20160212
  13. ALIMTA [Concomitant]
     Active Substance: PEMETREXED DISODIUM
     Indication: LUNG ADENOCARCINOMA
     Dosage: UNK UNK, UNKNOWN FREQ.
     Route: 042
     Dates: end: 20160212

REACTIONS (1)
  - Trousseau^s syndrome [Recovered/Resolved with Sequelae]

NARRATIVE: CASE EVENT DATE: 20160224
